FAERS Safety Report 10447999 (Version 1)
Quarter: 2014Q3

REPORT INFORMATION
  Report Type: Spontaneous
  Country: US (occurrence: US)
  Receive Date: 20140911
  Receipt Date: 20140911
  Transmission Date: 20150326
  Serious: No
  Sender: FDA-Public Use
  Company Number: US-BAYER-2014-133874

PATIENT
  Age: 68 Year
  Sex: Female
  Weight: 54.42 kg

DRUGS (3)
  1. CLIMARA [Suspect]
     Active Substance: ESTRADIOL
     Indication: HOT FLUSH
     Dosage: 1 DF, OW
     Route: 062
     Dates: start: 201407
  2. VIVELLE [ESTRADIOL] [Concomitant]
     Dosage: UNK
     Dates: start: 201301, end: 20140101
  3. CLIMARA [Suspect]
     Active Substance: ESTRADIOL
     Indication: HOT FLUSH
     Dosage: 1 DF, OW
     Route: 062
     Dates: start: 20140101, end: 201407

REACTIONS (2)
  - Product adhesion issue [Not Recovered/Not Resolved]
  - Body fat disorder [Not Recovered/Not Resolved]

NARRATIVE: CASE EVENT DATE: 20140101
